FAERS Safety Report 25260659 (Version 1)
Quarter: 2025Q2

REPORT INFORMATION
  Report Type: Spontaneous
  Country: US (occurrence: US)
  Receive Date: 20250501
  Receipt Date: 20250501
  Transmission Date: 20250716
  Serious: Yes (Hospitalization)
  Sender: NOVO NORDISK
  Company Number: US-NOVOPROD-1409548

PATIENT
  Age: 61 Year
  Sex: Female

DRUGS (2)
  1. WEGOVY [Suspect]
     Active Substance: SEMAGLUTIDE
     Indication: Insulin resistance
  2. WEGOVY [Suspect]
     Active Substance: SEMAGLUTIDE
     Indication: Cardiovascular disorder
     Dosage: 0.25 MG QW
     Dates: start: 20240814

REACTIONS (2)
  - Road traffic accident [Recovered/Resolved]
  - Product use in unapproved indication [Unknown]

NARRATIVE: CASE EVENT DATE: 20240820
